FAERS Safety Report 6717243-4 (Version None)
Quarter: 2010Q2

REPORT INFORMATION
  Report Type: 
  Country: None (occurrence: None)
  Receive Date: 20100510
  Receipt Date: 20100506
  Transmission Date: 20101027
  Serious: Yes (Life-Threatening, Hospitalization)
  Sender: FDA-Public Use
  Company Number: PHFR2010GB00470

PATIENT
  Age: 85 Year
  Sex: Male

DRUGS (4)
  1. ACLASTA [Suspect]
     Indication: OSTEOPOROSIS
     Dosage: 5 MG
     Route: 042
     Dates: start: 20100415
  2. ACETYLSALICYLIC ACID [Concomitant]
     Indication: THROMBOSIS PROPHYLAXIS
     Dosage: 150 MG, UNK
     Route: 048
     Dates: end: 20100414
  3. CLEXANE [Concomitant]
     Indication: DEEP VEIN THROMBOSIS
     Dosage: 100 MG, UNK
     Route: 058
     Dates: start: 20100414
  4. CALFOVIT D3 [Concomitant]

REACTIONS (1)
  - GASTROINTESTINAL HAEMORRHAGE [None]
